FAERS Safety Report 25832030 (Version 2)
Quarter: 2025Q4

REPORT INFORMATION
  Report Type: Spontaneous
  Country: JP (occurrence: JP)
  Receive Date: 20250922
  Receipt Date: 20251119
  Transmission Date: 20260118
  Serious: Yes (Hospitalization, Disabling, Other)
  Sender: OTSUKA
  Company Number: JP-MMM-Otsuka-D4CKRTA5

PATIENT
  Sex: Female

DRUGS (2)
  1. REXULTI [Suspect]
     Active Substance: BREXPIPRAZOLE
     Indication: Dementia Alzheimer^s type
     Dosage: UNK (DOSE INCREASED)
  2. REXULTI [Suspect]
     Active Substance: BREXPIPRAZOLE
     Indication: Agitation
     Dosage: UNK

REACTIONS (7)
  - Condition aggravated [Unknown]
  - Bedridden [Unknown]
  - Fracture [Unknown]
  - Urinary retention [Unknown]
  - Gait disturbance [Unknown]
  - Dysphagia [Unknown]
  - Constipation [Unknown]
